FAERS Safety Report 4942913-8 (Version None)
Quarter: 2006Q1

REPORT INFORMATION
  Report Type: 
  Country: None (occurrence: None)
  Receive Date: 20060309
  Receipt Date: 20060221
  Transmission Date: 20060701
  Serious: Yes (Hospitalization)
  Sender: FDA-Public Use
  Company Number: 2005-01815

PATIENT
  Age: 58 Year
  Sex: Female

DRUGS (13)
  1. VELCADE [Suspect]
     Indication: MULTIPLE MYELOMA
     Dosage: 0.70 + 1.70 MG/M2, INTRAVENOUS
     Route: 042
     Dates: start: 20050228, end: 20050819
  2. VELCADE [Suspect]
     Indication: MULTIPLE MYELOMA
     Dosage: 0.70 + 1.70 MG/M2, INTRAVENOUS
     Route: 042
     Dates: start: 20050920
  3. ATENOLOL [Suspect]
     Dosage: 25.00 QD, ORAL
     Route: 048
     Dates: start: 20050405, end: 20050822
  4. DIGOXIN [Suspect]
     Dosage: 12.50 MG, ORAL
     Route: 048
     Dates: start: 20050419, end: 20050822
  5. PLATELETS [Concomitant]
  6. FUROSEMIDE [Concomitant]
  7. ACETAMINOPHEN [Concomitant]
  8. PANAMAX (PARACETAMOL) [Concomitant]
  9. ACETAMINOPHEN [Concomitant]
  10. ENOXAPARIN SODIUM [Concomitant]
  11. METOCLOPRAMIDE [Concomitant]
  12. LOPERAMIDE HCL [Concomitant]
  13. TROPISETRON (TROPISETRON) [Concomitant]

REACTIONS (4)
  - ATRIAL FIBRILLATION [None]
  - ATRIOVENTRICULAR BLOCK COMPLETE [None]
  - BLOOD PRESSURE DIASTOLIC DECREASED [None]
  - NODAL RHYTHM [None]
